FAERS Safety Report 10554089 (Version 1)
Quarter: 2014Q4

REPORT INFORMATION
  Report Type: Spontaneous
  Country: US (occurrence: US)
  Receive Date: 20141030
  Receipt Date: 20141030
  Transmission Date: 20150529
  Serious: No
  Sender: FDA-Public Use
  Company Number: US-TEVA-463953USA

PATIENT
  Sex: Female

DRUGS (25)
  1. POTASSIUM CHLORIDE. [Concomitant]
     Active Substance: POTASSIUM CHLORIDE
     Dosage: 20 MILLIEQUIVALENTS DAILY;
     Route: 048
  2. CALMOSEPTINE [Concomitant]
     Active Substance: MENTHOL\ZINC OXIDE
     Indication: FUNGAL SKIN INFECTION
     Dosage: DAILY PRN
     Route: 061
  3. INDOMETHACIN. [Concomitant]
     Active Substance: INDOMETHACIN
     Dosage: 3X DAILY AS NEEDED
  4. MUPIROCIN. [Concomitant]
     Active Substance: MUPIROCIN
     Indication: DRY SKIN
     Dosage: DAILY PRN
     Route: 061
  5. VITAMIN B12 [Concomitant]
     Active Substance: CYANOCOBALAMIN
     Dosage: EVERY MONDAY
     Route: 030
  6. FERROUS SULFATE [Concomitant]
     Active Substance: FERROUS SULFATE\FERROUS SULFATE, DRIED
     Dosage: 325 MILLIGRAM DAILY;
     Route: 048
  7. METOLAZONE. [Concomitant]
     Active Substance: METOLAZONE
     Dosage: 2.5 MILLIGRAM DAILY;
  8. NEXIUM [Concomitant]
     Active Substance: ESOMEPRAZOLE MAGNESIUM
     Dosage: 20 MILLIGRAM DAILY;
  9. XANAX [Concomitant]
     Active Substance: ALPRAZOLAM
     Indication: ANXIETY
     Dosage: 4 TIMES DAILY PRN
     Route: 048
  10. AMITRIPTYLINE [Concomitant]
     Active Substance: AMITRIPTYLINE
     Dosage: 25 MILLIGRAM DAILY;
     Route: 048
  11. DRISDOL [Concomitant]
     Active Substance: ERGOCALCIFEROL
     Route: 048
  12. MAG-OXIDE [Concomitant]
     Dosage: 800 MILLIGRAM DAILY;
  13. PERCOCET [Concomitant]
     Active Substance: ACETAMINOPHEN\OXYCODONE HYDROCHLORIDE
     Indication: PAIN
     Dosage: 10MG/325MG TABLET EVERY 4-6 HOURS PRN
     Route: 048
  14. KEFLEX [Concomitant]
     Active Substance: CEPHALEXIN
  15. LIDODERM 5% [Concomitant]
     Dosage: 700 MILLIGRAM DAILY;
     Route: 061
  16. TOPROL XL [Concomitant]
     Active Substance: METOPROLOL SUCCINATE
     Dosage: 50 MILLIGRAM DAILY;
  17. IMITREX [Concomitant]
     Active Substance: SUMATRIPTAN\SUMATRIPTAN SUCCINATE
     Indication: HEADACHE
     Dosage: DAILY PRN
     Route: 048
  18. SKELAXIN [Concomitant]
     Active Substance: METAXALONE
     Dosage: 3200 MILLIGRAM DAILY; ALSO REPORTED AS EVERY 6-8 HOURS
     Route: 048
  19. MIRAPEX [Concomitant]
     Active Substance: PRAMIPEXOLE DIHYDROCHLORIDE
     Dosage: 6 MILLIGRAM DAILY; ALSO REPORTED AS EVERY 6-8 HOURS
     Route: 048
  20. DIAMOX SEQUELS [Suspect]
     Active Substance: ACETAZOLAMIDE
  21. SUDAFED [Concomitant]
     Active Substance: PSEUDOEPHEDRINE HYDROCHLORIDE
     Dosage: 120 MILLIGRAM DAILY;
     Route: 048
  22. DITROPAN XL [Concomitant]
     Active Substance: OXYBUTYNIN CHLORIDE
     Dosage: 20 MILLIGRAM DAILY; ALSO REPORTED AS EVERY 6-8 HOURS
     Route: 048
  23. LYRICA [Concomitant]
     Active Substance: PREGABALIN
     Dosage: 600 MILLIGRAM DAILY;
     Route: 048
  24. BACTRIM [Concomitant]
     Active Substance: SULFAMETHOXAZOLE\TRIMETHOPRIM
     Route: 048
  25. LASIX [Concomitant]
     Active Substance: FUROSEMIDE
     Dosage: 80 MILLIGRAM DAILY;
     Route: 048
     Dates: start: 20120921

REACTIONS (1)
  - Dysuria [Unknown]
